FAERS Safety Report 8348349-4 (Version None)
Quarter: 2012Q2

REPORT INFORMATION
  Report Type: 
  Country: None (occurrence: None)
  Receive Date: 20120509
  Receipt Date: 20120427
  Transmission Date: 20120825
  Serious: Yes (Other)
  Sender: FDA-Public Use
  Company Number: US-ROCHE-1064098

PATIENT
  Sex: Female

DRUGS (1)
  1. AVASTIN [Suspect]
     Indication: CYST

REACTIONS (4)
  - DISABILITY [None]
  - FRACTURED SACRUM [None]
  - COCCYDYNIA [None]
  - MENTAL DISORDER [None]
